FAERS Safety Report 7574729-0 (Version None)
Quarter: 2011Q2

REPORT INFORMATION
  Report Type: 
  Country: None (occurrence: None)
  Receive Date: 20110627
  Receipt Date: 20110621
  Transmission Date: 20111010
  Serious: Yes (Death, Other)
  Sender: FDA-Public Use
  Company Number: GXKR2010US12812

PATIENT
  Age: 19 Year
  Sex: Male

DRUGS (1)
  1. LAMOTRGINE [Suspect]
     Dosage: 4 G, UNK
     Route: 065

REACTIONS (20)
  - GRAND MAL CONVULSION [None]
  - TOXICITY TO VARIOUS AGENTS [None]
  - ENCEPHALOPATHY [None]
  - SINUS TACHYCARDIA [None]
  - RENAL FAILURE [None]
  - PULSE ABSENT [None]
  - OVERDOSE [None]
  - TREMOR [None]
  - RESPIRATORY ACIDOSIS [None]
  - PNEUMONIA KLEBSIELLA [None]
  - DISSEMINATED INTRAVASCULAR COAGULATION [None]
  - PALLOR [None]
  - DEPRESSION [None]
  - METABOLIC ACIDOSIS [None]
  - RHABDOMYOLYSIS [None]
  - PNEUMONIA STAPHYLOCOCCAL [None]
  - ASPIRATION [None]
  - ATRIOVENTRICULAR BLOCK [None]
  - HYPOTENSION [None]
  - MULTI-ORGAN FAILURE [None]
